FAERS Safety Report 9248868 (Version 1)
Quarter: 2013Q1

REPORT INFORMATION
  Report Type: Spontaneous
  Country: US (occurrence: None)
  Receive Date: 20130305
  Receipt Date: 20130305
  Transmission Date: 20140127
  Serious: Yes (Other)
  Sender: FDA-Public Use
  Company Number: 163-21880-12100339

PATIENT
  Age: 68 Year
  Sex: Female

DRUGS (1)
  1. REVLIMID [Suspect]
     Indication: PLASMA CELL MYELOMA
     Dosage: 15 MG, 21 AND 28 D, PO
     Route: 048
     Dates: start: 20120919

REACTIONS (4)
  - Fatigue [None]
  - Muscular weakness [None]
  - Decreased appetite [None]
  - Weight decreased [None]
